FAERS Safety Report 6724344-3 (Version None)
Quarter: 2010Q2

REPORT INFORMATION
  Report Type: 
  Country: None (occurrence: None)
  Receive Date: 20100513
  Receipt Date: 20100505
  Transmission Date: 20101027
  Serious: No
  Sender: FDA-Public Use
  Company Number: US-ROXANE LABORATORIES, INC.-2010-RO-00571RO

PATIENT
  Sex: Female

DRUGS (1)
  1. LITHIUM CARBONATE [Suspect]

REACTIONS (6)
  - ALOPECIA [None]
  - AMNESIA [None]
  - COGNITIVE DISORDER [None]
  - DIARRHOEA [None]
  - MOTOR DYSFUNCTION [None]
  - TREMOR [None]
